FAERS Safety Report 10143819 (Version 2)
Quarter: 2014Q2

REPORT INFORMATION
  Report Type: Report from Study
  Country: NL (occurrence: NL)
  Receive Date: 20140430
  Receipt Date: 20140603
  Transmission Date: 20141212
  Serious: Yes (Hospitalization)
  Sender: FDA-Public Use
  Company Number: NL-GLAXOSMITHKLINE-B0989030A

PATIENT
  Age: 71 Year
  Sex: Male

DRUGS (6)
  1. PAZOPANIB [Suspect]
     Indication: RENAL CELL CARCINOMA
     Dosage: 800MG PER DAY
     Route: 048
     Dates: start: 20140131
  2. EVEROLIMUS [Suspect]
     Indication: RENAL CELL CARCINOMA
     Dosage: 10MG PER DAY
     Dates: start: 20140328
  3. MORPHINE [Concomitant]
  4. FENTANYL [Concomitant]
  5. MOVICOLON [Concomitant]
  6. DEXAMETHASONE [Concomitant]
     Dates: start: 20140415

REACTIONS (1)
  - Pain [Recovered/Resolved with Sequelae]
